FAERS Safety Report 5778487-1 (Version None)
Quarter: 2008Q2

REPORT INFORMATION
  Report Type: 
  Country: None (occurrence: None)
  Receive Date: 20080617
  Receipt Date: 20080603
  Transmission Date: 20081010
  Serious: No
  Sender: FDA-Public Use
  Company Number: 2008SP010003

PATIENT
  Age: 90 Year
  Sex: Male
  Weight: 77.1115 kg

DRUGS (4)
  1. A NAD D ZINC OXIDE CREAM [Suspect]
     Indication: DERMATITIS DIAPER
     Dosage: TOP
     Dates: start: 20080512, end: 20080514
  2. VITAMIN (CON.) [Concomitant]
  3. VITAMIN E (CON.) [Concomitant]
  4. GINSENG (CON.) [Concomitant]

REACTIONS (6)
  - ASTHENIA [None]
  - BURNING SENSATION [None]
  - DYSPNOEA [None]
  - FEELING ABNORMAL [None]
  - MOBILITY DECREASED [None]
  - PAIN [None]
